FAERS Safety Report 7399044-X (Version None)
Quarter: 2011Q1

REPORT INFORMATION
  Report Type: 
  Country: None (occurrence: None)
  Receive Date: 20110328
  Receipt Date: 20110321
  Transmission Date: 20110831
  Serious: Yes (Other)
  Sender: FDA-Public Use
  Company Number: TRP_07584_2011

PATIENT
  Sex: Female

DRUGS (2)
  1. PEGASYS [Suspect]
     Indication: PRODUCT USED FOR UNKNOWN INDICATION
     Dosage: DF
  2. RIBASPHERE [Suspect]
     Indication: PRODUCT USED FOR UNKNOWN INDICATION
     Dosage: DF

REACTIONS (6)
  - ARTHRALGIA [None]
  - DEPRESSION [None]
  - WHITE BLOOD CELL COUNT DECREASED [None]
  - PAIN IN EXTREMITY [None]
  - THROMBOSIS [None]
  - SKIN DISCOLOURATION [None]
